FAERS Safety Report 5334234-9 (Version None)
Quarter: 2007Q2

REPORT INFORMATION
  Report Type: 
  Country: None (occurrence: None)
  Receive Date: 20070525
  Receipt Date: 20070124
  Transmission Date: 20071010
  Serious: No
  Sender: FDA-Public Use
  Company Number: A0634950A

PATIENT
  Age: 93 Year
  Sex: Female

DRUGS (6)
  1. BACTROBAN [Suspect]
     Indication: SKIN LESION
     Dosage: 1APP THREE TIMES PER DAY
     Route: 061
     Dates: start: 20061229
  2. LIPITOR [Concomitant]
  3. TOPROL-XL [Concomitant]
  4. SYNTHROID [Concomitant]
  5. ASPIRIN [Concomitant]
  6. ASCORBIC ACID [Concomitant]

REACTIONS (3)
  - APPLICATION SITE DISCOLOURATION [None]
  - APPLICATION SITE ERYTHEMA [None]
  - APPLICATION SITE WARMTH [None]
